FAERS Safety Report 5156691-3 (Version None)
Quarter: 2006Q4

REPORT INFORMATION
  Report Type: 
  Country: None (occurrence: None)
  Receive Date: 20061115
  Receipt Date: 20061107
  Transmission Date: 20070319
  Serious: Yes (Hospitalization)
  Sender: FDA-Public Use
  Company Number: 2006AL003466

PATIENT
  Age: 23 Year
  Sex: Male

DRUGS (2)
  1. DICLOFENAC SODIUM [Suspect]
     Indication: PAIN
     Dosage: 50 MG; TID; PO
     Route: 048
     Dates: start: 20061024, end: 20061025
  2. METRONIDAZOLE [Concomitant]

REACTIONS (2)
  - CONVULSION [None]
  - TREMOR [None]
